FAERS Safety Report 12188911 (Version 1)
Quarter: 2016Q1

REPORT INFORMATION
  Report Type: Spontaneous
  Country: US (occurrence: US)
  Receive Date: 20160317
  Receipt Date: 20160317
  Transmission Date: 20160526
  Serious: No
  Sender: FDA-Public Use
  Company Number: US-PERRIGO-15US009409

PATIENT
  Age: 21 Year
  Sex: Female
  Weight: 90.7 kg

DRUGS (1)
  1. TESTOSTERONE CYPIONATE. [Suspect]
     Active Substance: TESTOSTERONE CYPIONATE
     Indication: TRANSGENDER HORMONAL THERAPY
     Dosage: 100 MG, ONCE EVERY 2 WEEKS
     Route: 030
     Dates: start: 201508

REACTIONS (2)
  - No adverse event [Unknown]
  - Off label use [Not Recovered/Not Resolved]

NARRATIVE: CASE EVENT DATE: 201508
